FAERS Safety Report 10359004 (Version 1)
Quarter: 2014Q3

REPORT INFORMATION
  Report Type: Report from Study
  Country: US (occurrence: US)
  Receive Date: 20140804
  Receipt Date: 20140804
  Transmission Date: 20150326
  Serious: Yes (Other)
  Sender: FDA-Public Use
  Company Number: US-ROCHE-1443428

PATIENT
  Sex: Male

DRUGS (10)
  1. DESMOPRESSIN [Concomitant]
     Active Substance: DESMOPRESSIN
     Indication: POLYURIA
     Route: 065
  2. ATORVASTATIN [Concomitant]
     Active Substance: ATORVASTATIN
     Route: 048
  3. LOTRIMIN (UNITED STATES) [Concomitant]
     Route: 061
  4. SOLU-CORTEF [Concomitant]
     Active Substance: HYDROCORTISONE SODIUM SUCCINATE
     Indication: VOMITING
     Route: 030
  5. LEVOTHYROXINE [Concomitant]
     Active Substance: LEVOTHYROXINE
     Route: 048
  6. TESTOSTERONE. [Concomitant]
     Active Substance: TESTOSTERONE
     Route: 030
  7. HYDROCORTISONE. [Concomitant]
     Active Substance: HYDROCORTISONE
     Route: 048
  8. NUTROPIN AQ [Suspect]
     Active Substance: SOMATROPIN
     Indication: HYPOPITUITARISM
     Route: 058
  9. DDAVP [Concomitant]
     Active Substance: DESMOPRESSIN ACETATE
     Dosage: 2 TABLETS THREE TIMES A DAY.
     Route: 048
  10. METFORMIN [Concomitant]
     Active Substance: METFORMIN HYDROCHLORIDE
     Route: 048

REACTIONS (6)
  - Metabolic syndrome [Unknown]
  - Nuclear magnetic resonance imaging abnormal [Unknown]
  - Increased appetite [Unknown]
  - Diabetes insipidus [Unknown]
  - Obesity [Unknown]
  - Weight fluctuation [Unknown]
